FAERS Safety Report 18606708 (Version 1)
Quarter: 2020Q4

REPORT INFORMATION
  Report Type: Spontaneous
  Country: US (occurrence: US)
  Receive Date: 20201211
  Receipt Date: 20201211
  Transmission Date: 20210114
  Serious: Yes (Hospitalization, Other)
  Sender: FDA-Public Use
  Company Number: US-ASTRAZENECA-2020SF63484

PATIENT
  Age: 33 Year
  Sex: Female

DRUGS (9)
  1. PALBOCICLIB [Suspect]
     Active Substance: PALBOCICLIB
     Route: 048
     Dates: start: 20190424
  2. FASLODEX [Suspect]
     Active Substance: FULVESTRANT
     Dosage: UNKNOWN
     Route: 030
     Dates: start: 20191227
  3. LETROZOLE. [Concomitant]
     Active Substance: LETROZOLE
     Dates: start: 20190424
  4. DOCETAXEL. [Concomitant]
     Active Substance: DOCETAXEL
     Dates: start: 20200211
  5. ADRIAMYCIN [Concomitant]
     Active Substance: DOXORUBICIN HYDROCHLORIDE
     Dates: start: 20200211
  6. ABRAXANE [Concomitant]
     Active Substance: PACLITAXEL
     Dates: start: 20200629
  7. ERIBULIN [Concomitant]
     Active Substance: ERIBULIN
     Dates: start: 20200813
  8. LUPRON [Concomitant]
     Active Substance: LEUPROLIDE ACETATE
     Dates: start: 20190424
  9. CYCLOPHOSPHAMIDE. [Concomitant]
     Active Substance: CYCLOPHOSPHAMIDE
     Dates: start: 20200211

REACTIONS (6)
  - Hypoxia [Unknown]
  - Metastases to lung [Unknown]
  - Metastases to spine [Unknown]
  - Metastases to central nervous system [Unknown]
  - Pulmonary toxicity [Unknown]
  - Lung infiltration [Unknown]
